FAERS Safety Report 9938674 (Version 2)
Quarter: 2014Q1

REPORT INFORMATION
  Report Type: Spontaneous
  Country: CN (occurrence: CN)
  Receive Date: 20140303
  Receipt Date: 20140303
  Transmission Date: 20141002
  Serious: Yes (Other)
  Sender: FDA-Public Use
  Company Number: CN-JNJFOC-20120208676

PATIENT
  Age: 33 Year
  Sex: Female

DRUGS (1)
  1. SPORANOX [Suspect]
     Indication: VAGINAL INFECTION
     Dosage: THE PATIENT TOOK 12 CAPSULES IN TOTAL
     Route: 048
     Dates: start: 20120209, end: 20120212

REACTIONS (2)
  - Premature labour [Recovered/Resolved]
  - Exposure during pregnancy [Recovered/Resolved]
